FAERS Safety Report 6688024-5 (Version None)
Quarter: 2010Q2

REPORT INFORMATION
  Report Type: 
  Country: None (occurrence: None)
  Receive Date: 20100420
  Receipt Date: 20100311
  Transmission Date: 20101027
  Serious: Yes (Other)
  Sender: FDA-Public Use
  Company Number: FR-BAYER-201022195GPV

PATIENT
  Age: 3 Year
  Sex: Male

DRUGS (1)
  1. KOGENATE [Suspect]
     Indication: PROPHYLAXIS
     Route: 065
     Dates: start: 20100101

REACTIONS (2)
  - FACTOR VIII INHIBITION [None]
  - HAEMATOMA [None]
